FAERS Safety Report 8478187-3 (Version None)
Quarter: 2012Q2

REPORT INFORMATION
  Report Type: 
  Country: None (occurrence: None)
  Receive Date: 20120629
  Receipt Date: 20120618
  Transmission Date: 20120825
  Serious: Yes (Hospitalization, Other)
  Sender: FDA-Public Use
  Company Number: US-ELI_LILLY_AND_COMPANY-US201010000081

PATIENT
  Sex: Female

DRUGS (39)
  1. FORTEO [Suspect]
     Dosage: 20 UG, DAILY (1/D)
     Route: 058
  2. AVELOX [Concomitant]
  3. COZAAR [Concomitant]
     Indication: BLOOD PRESSURE
     Dosage: UNK
  4. WELLBUTRIN [Concomitant]
     Indication: DEPRESSION
     Dosage: UNK
  5. LEVAQUIN [Concomitant]
     Dosage: UNK
  6. FLUTICASONE PROPIONATE [Concomitant]
     Dosage: UNK
     Route: 055
  7. FORTEO [Suspect]
     Dosage: 20 UG, QD
     Route: 058
  8. KETOCONAZOLE [Concomitant]
     Dosage: UNK
  9. ALBUTEROL [Concomitant]
     Dosage: UNK
  10. ALLOPURINOL [Concomitant]
     Dosage: UNK
  11. FORTEO [Suspect]
     Dosage: 20 UG, QD
     Route: 058
  12. LASIX [Concomitant]
     Dosage: UNK
  13. MS CONTIN [Concomitant]
     Indication: PAIN IN EXTREMITY
     Dosage: UNK
  14. QVAR 40 [Concomitant]
     Dosage: UNK
  15. ANTIBIOTICS [Concomitant]
  16. POTASSIUM CHLORIDE [Concomitant]
     Dosage: UNK
  17. RESTORIL [Concomitant]
     Dosage: UNK
  18. COMPAZINE [Concomitant]
     Indication: NAUSEA
     Dosage: UNK
  19. DILAUDID [Concomitant]
     Dosage: UNK
  20. TYLENOL                                 /SCH/ [Concomitant]
     Dosage: UNK
  21. FORTEO [Suspect]
     Dosage: 20 UG, QD
     Route: 058
  22. FORTEO [Suspect]
     Dosage: 20 UG, QD
     Route: 058
  23. COLACE [Concomitant]
     Dosage: UNK
  24. ASPIRIN [Concomitant]
     Dosage: UNK
  25. PRILOSEC [Concomitant]
     Dosage: UNK
  26. PREDNISONE [Concomitant]
     Indication: CHRONIC OBSTRUCTIVE PULMONARY DISEASE
     Dosage: UNK, PRN
  27. FORTEO [Suspect]
     Dosage: 20 UG, QD
     Route: 058
  28. ATROVENT [Concomitant]
     Dosage: UNK
  29. VITAMIN D [Concomitant]
     Dosage: 2000 U, UNK
  30. VITAMIN B-12 [Concomitant]
     Dosage: UNK
  31. COREG [Concomitant]
     Dosage: UNK
  32. FORTEO [Suspect]
     Indication: OSTEOPOROSIS
     Dosage: 20 UG, DAILY (1/D)
     Route: 058
     Dates: start: 20100913
  33. ATIVAN [Concomitant]
     Dosage: UNK
  34. DESONIDE [Concomitant]
     Dosage: UNK, QD
  35. FORTEO [Suspect]
     Dosage: 20 UG, DAILY (1/D)
     Route: 058
  36. FORTEO [Suspect]
     Dosage: 20 UG, DAILY (1/D)
     Route: 058
  37. FORTEO [Suspect]
     Dosage: 20 UG, QD
     Route: 058
  38. FORTEO [Suspect]
     Dosage: 20 UG, QD
     Route: 058
  39. LEXAPRO [Concomitant]

REACTIONS (39)
  - MALAISE [None]
  - JOINT INJURY [None]
  - PYREXIA [None]
  - DYSPNOEA [None]
  - SKIN MASS [None]
  - VISUAL ACUITY REDUCED [None]
  - VITAMIN D DECREASED [None]
  - HYPERHIDROSIS [None]
  - NAUSEA [None]
  - MUSCLE SPASMS [None]
  - SINUSITIS [None]
  - PAIN IN EXTREMITY [None]
  - COUGH [None]
  - JOINT SWELLING [None]
  - ARTHROPATHY [None]
  - BACK DISORDER [None]
  - EYE DISORDER [None]
  - INJECTION SITE HAEMORRHAGE [None]
  - PRURITUS [None]
  - WEIGHT DECREASED [None]
  - SPINAL DISORDER [None]
  - MUSCULOSKELETAL DISORDER [None]
  - FALL [None]
  - LIMB INJURY [None]
  - BLOOD TEST ABNORMAL [None]
  - ERYTHEMA [None]
  - NASOPHARYNGITIS [None]
  - CONTUSION [None]
  - CATARACT [None]
  - HEAD INJURY [None]
  - HYPERSENSITIVITY [None]
  - DISCOMFORT [None]
  - FATIGUE [None]
  - HEADACHE [None]
  - ARTHRALGIA [None]
  - RASH [None]
  - PNEUMONIA [None]
  - ARTHRITIS [None]
  - OEDEMA PERIPHERAL [None]
